FAERS Safety Report 23517007 (Version 1)
Quarter: 2024Q1

REPORT INFORMATION
  Report Type: Spontaneous
  Country: US (occurrence: None)
  Receive Date: 20240212
  Receipt Date: 20240212
  Transmission Date: 20240409
  Serious: Yes (Hospitalization, Disabling)
  Sender: FDA-Public Use
  Company Number: None

PATIENT
  Age: 49 Year
  Sex: Female

DRUGS (1)
  1. PREDNISONE [Suspect]
     Active Substance: PREDNISONE
     Indication: Rash
     Dosage: OTHER QUANTITY : 2 TABLET(S);?FREQUENCY : DAILY;?
     Route: 048
     Dates: start: 20240117, end: 20240120

REACTIONS (1)
  - Substance-induced psychotic disorder [None]

NARRATIVE: CASE EVENT DATE: 20240120
